FAERS Safety Report 7332371-0 (Version None)
Quarter: 2011Q1

REPORT INFORMATION
  Report Type: 
  Country: None (occurrence: None)
  Receive Date: 20110304
  Receipt Date: 20110221
  Transmission Date: 20110831
  Serious: Yes (Other)
  Sender: FDA-Public Use
  Company Number: B0676985A

PATIENT
  Age: 66 Year
  Sex: Male
  Weight: 128 kg

DRUGS (5)
  1. NOVONORM [Concomitant]
     Dosage: 3UNIT PER DAY
     Route: 048
     Dates: end: 20100601
  2. APROVEL [Concomitant]
     Dosage: 300MG PER DAY
     Route: 048
  3. AVANDIA [Suspect]
     Dosage: 4MG TWICE PER DAY
     Route: 048
     Dates: start: 20020101, end: 20100610
  4. KARDEGIC [Concomitant]
     Dosage: 75MG PER DAY
     Route: 048
     Dates: end: 20100701
  5. TAHOR [Concomitant]
     Dosage: 20MG PER DAY
     Route: 048

REACTIONS (4)
  - HEPATOCELLULAR INJURY [None]
  - CHEST PAIN [None]
  - WEIGHT INCREASED [None]
  - ATRIAL FIBRILLATION [None]
